FAERS Safety Report 25782505 (Version 1)
Quarter: 2025Q3

REPORT INFORMATION
  Report Type: Report from Study
  Country: CL (occurrence: CL)
  Receive Date: 20250909
  Receipt Date: 20250909
  Transmission Date: 20251021
  Serious: Yes (Hospitalization, Other)
  Sender: JOHNSON AND JOHNSON
  Company Number: CL-JNJFOC-20230713927

PATIENT
  Age: 48 Year
  Sex: Male

DRUGS (1)
  1. SIMPONI [Suspect]
     Active Substance: GOLIMUMAB
     Indication: Psoriatic arthropathy
     Route: 058
     Dates: start: 20230531

REACTIONS (10)
  - Hospitalisation [Unknown]
  - Arrhythmia [Unknown]
  - Surgery [Unknown]
  - Influenza [Unknown]
  - Dizziness [Unknown]
  - Stress [Unknown]
  - Blood glucose increased [Unknown]
  - Cardiac disorder [Unknown]
  - Oedema peripheral [Unknown]
  - Off label use [Unknown]
